FAERS Safety Report 13583139 (Version 1)
Quarter: 2017Q2

REPORT INFORMATION
  Report Type: Spontaneous
  Country: US (occurrence: US)
  Receive Date: 20170525
  Receipt Date: 20170525
  Transmission Date: 20170830
  Serious: No
  Sender: FDA-Public Use
  Company Number: GXBR2017US001604

PATIENT
  Age: 66 Year
  Sex: Female
  Weight: 72.56 kg

DRUGS (4)
  1. BISOPROLOL FUMARATE TABLETS [Suspect]
     Active Substance: BISOPROLOL FUMARATE
     Indication: BLOOD PRESSURE MEASUREMENT
     Dosage: 5 MG, QD
     Route: 048
     Dates: start: 20170430
  2. HYDROCHLOROTHIAZID [Suspect]
     Active Substance: HYDROCHLOROTHIAZIDE
     Indication: DYSPNOEA
     Dosage: 1 DF, QD
     Route: 048
     Dates: start: 20170430
  3. HYDROCHLOROTHIAZID [Suspect]
     Active Substance: HYDROCHLOROTHIAZIDE
     Indication: CARDIAC MURMUR
  4. HYDROCHLOROTHIAZID [Suspect]
     Active Substance: HYDROCHLOROTHIAZIDE
     Indication: MITRAL VALVE INCOMPETENCE

REACTIONS (2)
  - Urine output decreased [Not Recovered/Not Resolved]
  - Peripheral swelling [Not Recovered/Not Resolved]

NARRATIVE: CASE EVENT DATE: 20170502
